FAERS Safety Report 21298872 (Version 1)
Quarter: 2022Q3

REPORT INFORMATION
  Report Type: Spontaneous
  Country: ES (occurrence: ES)
  Receive Date: 20220906
  Receipt Date: 20220906
  Transmission Date: 20221026
  Serious: Yes (Other)
  Sender: FDA-Public Use
  Company Number: None

PATIENT
  Age: 61 Year
  Sex: Female

DRUGS (5)
  1. COSENTYX [Suspect]
     Active Substance: SECUKINUMAB
     Indication: Axial spondyloarthritis
     Dosage: UNK, 1? ADMINISTRACION
     Route: 058
     Dates: start: 20220526, end: 20220526
  2. COSENTYX [Suspect]
     Active Substance: SECUKINUMAB
     Dosage: UNK, 2? ADMINISTRACION
     Route: 058
     Dates: start: 20220602, end: 20220602
  3. COSENTYX [Suspect]
     Active Substance: SECUKINUMAB
     Dosage: UNK, 3? ADMINISTRACION
     Route: 058
     Dates: start: 20220609, end: 20220609
  4. COSENTYX [Suspect]
     Active Substance: SECUKINUMAB
     Dosage: UNK, 4? ADMINISTRACION
     Route: 058
     Dates: start: 20220616, end: 20220616
  5. COSENTYX [Suspect]
     Active Substance: SECUKINUMAB
     Dosage: UNK, 5? ADMINISTRACION
     Route: 058
     Dates: start: 20220623, end: 20220623

REACTIONS (3)
  - Pruritus [Recovering/Resolving]
  - Nausea [Recovered/Resolved]
  - Headache [Recovered/Resolved]

NARRATIVE: CASE EVENT DATE: 20220526
